FAERS Safety Report 25483929 (Version 2)
Quarter: 2025Q2

REPORT INFORMATION
  Report Type: Spontaneous
  Country: DE (occurrence: DE)
  Receive Date: 20250626
  Receipt Date: 20250626
  Transmission Date: 20250717
  Serious: Yes (Hospitalization, Other)
  Sender: PFIZER
  Company Number: DE-PFIZER INC-199968891PHANOV

PATIENT
  Age: 34 Year
  Sex: Male

DRUGS (2)
  1. FRAGMIN [Suspect]
     Active Substance: DALTEPARIN SODIUM
     Indication: Thrombosis prophylaxis
  2. HEPARIN SODIUM [Suspect]
     Active Substance: HEPARIN SODIUM
     Indication: Thrombosis prophylaxis
     Dates: end: 1999

REACTIONS (6)
  - Thrombocytopenia [Recovered/Resolved]
  - Skin necrosis [Recovered/Resolved]
  - Polyglandular autoimmune syndrome type II [Recovered/Resolved]
  - Vocal cord paralysis [Recovered/Resolved]
  - Adrenal haemorrhage [Unknown]
  - Injection site erythema [Unknown]
